FAERS Safety Report 24785155 (Version 1)
Quarter: 2024Q4

REPORT INFORMATION
  Report Type: Spontaneous
  Country: US (occurrence: None)
  Receive Date: 20241227
  Receipt Date: 20241227
  Transmission Date: 20250115
  Serious: Yes (Hospitalization)
  Sender: Public
  Company Number: None

PATIENT
  Age: 3 Year
  Sex: Female
  Weight: 13.9 kg

DRUGS (2)
  1. CISPLATIN [Suspect]
     Active Substance: CISPLATIN
     Dates: end: 20241013
  2. ETOPOSIDE [Suspect]
     Active Substance: ETOPOSIDE
     Dates: end: 20241013

REACTIONS (5)
  - Hypokalaemia [None]
  - Nausea [None]
  - Vomiting [None]
  - Hypophagia [None]
  - Electrolyte substitution therapy [None]

NARRATIVE: CASE EVENT DATE: 20241218
